FAERS Safety Report 4901690-7 (Version None)
Quarter: 2006Q1

REPORT INFORMATION
  Report Type: 
  Country: None (occurrence: None)
  Receive Date: 20060206
  Receipt Date: 20021201
  Transmission Date: 20060701
  Serious: Yes (Other)
  Sender: FDA-Public Use
  Company Number: US-BRISTOL-MYERS SQUIBB COMPANY-13172234

PATIENT

DRUGS (4)
  1. PARAPLATIN [Suspect]
     Indication: BREAST CANCER METASTATIC
  2. TAXOL [Suspect]
     Indication: BREAST CANCER METASTATIC
  3. DOCETAXEL [Suspect]
     Indication: BREAST CANCER METASTATIC
  4. HERCEPTIN [Suspect]
     Indication: BREAST CANCER METASTATIC

REACTIONS (1)
  - FEBRILE NEUTROPENIA [None]
